FAERS Safety Report 26211050 (Version 1)
Quarter: 2025Q4

REPORT INFORMATION
  Report Type: Spontaneous
  Country: CN (occurrence: CN)
  Receive Date: 20251230
  Receipt Date: 20251230
  Transmission Date: 20260118
  Serious: Yes (Death, Life-Threatening, Hospitalization, Other)
  Sender: ROCHE
  Company Number: CN-ROCHE-10000466310

PATIENT
  Age: 10 Year
  Sex: Female

DRUGS (1)
  1. BALOXAVIR MARBOXIL [Suspect]
     Active Substance: BALOXAVIR MARBOXIL
     Indication: Influenza

REACTIONS (9)
  - Pneumonia viral [Unknown]
  - Encephalitis viral [Unknown]
  - Generalised tonic-clonic seizure [Unknown]
  - Brain herniation [Fatal]
  - Decreased appetite [Unknown]
  - Mental disorder [Unknown]
  - Somnolence [Unknown]
  - Respiratory failure [Fatal]
  - Circulatory collapse [Fatal]

NARRATIVE: CASE EVENT DATE: 20241210
